FAERS Safety Report 7528799-6 (Version None)
Quarter: 2011Q2

REPORT INFORMATION
  Report Type: 
  Country: None (occurrence: None)
  Receive Date: 20110607
  Receipt Date: 20101029
  Transmission Date: 20111010
  Serious: No
  Sender: FDA-Public Use
  Company Number: US-ASTRAZENECA-2010SE52184

PATIENT
  Sex: Female

DRUGS (3)
  1. TOPROL-XL [Concomitant]
  2. PRILOSEC OTC [Suspect]
     Indication: DYSPEPSIA
     Dosage: 1 TABLET, 1  PER DAY FOR 4 DAYS
     Route: 048
     Dates: start: 20101025, end: 20101028
  3. LIPITOR [Concomitant]

REACTIONS (2)
  - TREMOR [None]
  - INAPPROPRIATE SCHEDULE OF DRUG ADMINISTRATION [None]
